FAERS Safety Report 8905250 (Version 4)
Quarter: 2013Q2

REPORT INFORMATION
  Report Type: Spontaneous
  Country: DE (occurrence: DE)
  Receive Date: 20121109
  Receipt Date: 20130516
  Transmission Date: 20140414
  Serious: Yes (Other)
  Sender: FDA-Public Use
  Company Number: DE-GILEAD-2012-0064344

PATIENT
  Sex: Male

DRUGS (2)
  1. EVIPLERA [Suspect]
     Indication: HIV INFECTION
     Dosage: UNK
     Dates: start: 201204, end: 20121025
  2. URBASON                            /00049601/ [Concomitant]

REACTIONS (4)
  - Viral mutation identified [Not Recovered/Not Resolved]
  - Virologic failure [Not Recovered/Not Resolved]
  - Multiple-drug resistance [Not Recovered/Not Resolved]
  - Drug ineffective [Not Recovered/Not Resolved]
